FAERS Safety Report 7864699-X (Version None)
Quarter: 2011Q4

REPORT INFORMATION
  Report Type: 
  Country: None (occurrence: None)
  Receive Date: 20111028
  Receipt Date: 20111017
  Transmission Date: 20120403
  Serious: Yes (Life-Threatening, Hospitalization)
  Sender: FDA-Public Use
  Company Number: JP-UCBSA-042632

PATIENT
  Age: 52 Year
  Sex: Female

DRUGS (2)
  1. XYZAL [Suspect]
     Indication: HYPERSENSITIVITY
     Dosage: NO OF SEPARATE DOSAGES: 1 TAB
     Route: 048
     Dates: start: 20110926, end: 20110926
  2. XYZAL [Suspect]
     Indication: URTICARIA CHRONIC
     Dosage: NO OF SEPARATE DOSAGES: 1 TAB
     Route: 048
     Dates: start: 20110926, end: 20110926

REACTIONS (2)
  - DYSPNOEA [None]
  - RESPIRATORY FAILURE [None]
